FAERS Safety Report 4950363-3 (Version None)
Quarter: 2006Q1

REPORT INFORMATION
  Report Type: 
  Country: None (occurrence: None)
  Receive Date: 20060322
  Receipt Date: 20060303
  Transmission Date: 20060701
  Serious: Yes (Other)
  Sender: FDA-Public Use
  Company Number: PHEH2006US02905

PATIENT
  Sex: Female

DRUGS (1)
  1. AREDIA [Suspect]
     Dates: start: 20020401, end: 20050701

REACTIONS (2)
  - JAW OPERATION [None]
  - OSTEONECROSIS [None]
